FAERS Safety Report 10208780 (Version 3)
Quarter: 2018Q4

REPORT INFORMATION
  Report Type: Spontaneous
  Country: CA (occurrence: CA)
  Receive Date: 20140530
  Receipt Date: 20181212
  Transmission Date: 20190204
  Serious: Yes (Other)
  Sender: FDA-Public Use
  Company Number: CA-PFIZER INC-2014147664

PATIENT
  Age: 19 Year
  Sex: Female

DRUGS (3)
  1. ALCOHOL. [Suspect]
     Active Substance: ALCOHOL
     Dosage: 240 MG, UNK
     Route: 048
  2. MORPHINE SULFATE. [Suspect]
     Active Substance: MORPHINE SULFATE
     Dosage: UNK
     Route: 065
  3. CODEINE [Suspect]
     Active Substance: CODEINE
     Dosage: UNK
     Route: 065

REACTIONS (6)
  - Victim of chemical submission [Unknown]
  - Confusional state [Unknown]
  - Loss of consciousness [Unknown]
  - Disorientation [Unknown]
  - Victim of sexual abuse [Unknown]
  - Amnesia [Unknown]

NARRATIVE: CASE EVENT DATE: 20110320
